FAERS Safety Report 6529412-7 (Version None)
Quarter: 2010Q1

REPORT INFORMATION
  Report Type: 
  Country: None (occurrence: None)
  Receive Date: 20100104
  Receipt Date: 20091221
  Transmission Date: 20100710
  Serious: Yes (Hospitalization)
  Sender: FDA-Public Use
  Company Number: 007695

PATIENT
  Age: 80 Year
  Sex: Male

DRUGS (7)
  1. PLETAL [Suspect]
     Indication: ARTERIOSCLEROSIS OBLITERANS
     Dosage: 100 MG, BID ORAL
     Route: 048
     Dates: start: 20080709, end: 20090128
  2. PRAVARON (PRAVASTATIN SODIUM) TABLET [Concomitant]
  3. BAYMYCARD (NISOLDIPINE) TABLET [Concomitant]
  4. ACECOL (TEMOCAPRIL HYDROCHLORIDE) TABLET [Concomitant]
  5. NICORANDIS (NICORANDIL) TABLET [Concomitant]
  6. SUCRALFATE [Concomitant]
  7. SIGMART (NICORANDIL) [Concomitant]

REACTIONS (1)
  - CARDIAC FAILURE [None]
